FAERS Safety Report 15762534 (Version 2)
Quarter: 2019Q1

REPORT INFORMATION
  Report Type: Report from Study
  Country: RO (occurrence: RO)
  Receive Date: 20181226
  Receipt Date: 20190115
  Transmission Date: 20190417
  Serious: Yes (Hospitalization)
  Sender: FDA-Public Use
  Company Number: RO-B.I. PHARMACEUTICALS,INC./RIDGEFIELD-2018-BI-056161

PATIENT
  Age: 57 Year
  Sex: Male
  Weight: 96 kg

DRUGS (3)
  1. PRADAXA [Suspect]
     Active Substance: DABIGATRAN ETEXILATE MESYLATE
     Indication: ATRIAL FIBRILLATION
     Route: 065
  2. AMIODARONE [Concomitant]
     Active Substance: AMIODARONE
     Indication: ARRHYTHMIA
     Route: 065
  3. METOPROLOL. [Concomitant]
     Active Substance: METOPROLOL
     Indication: ARRHYTHMIA
     Route: 065

REACTIONS (8)
  - Haematochezia [Recovered/Resolved]
  - Palpitations [Recovering/Resolving]
  - Fatigue [Recovering/Resolving]
  - Renal impairment [Unknown]
  - Haemoglobin decreased [Recovering/Resolving]
  - Anaemia [Recovering/Resolving]
  - Anal fissure [Recovering/Resolving]
  - Haemorrhoids [Recovering/Resolving]

NARRATIVE: CASE EVENT DATE: 20180307
